FAERS Safety Report 24526163 (Version 1)
Quarter: 2024Q4

REPORT INFORMATION
  Report Type: Spontaneous
  Country: US (occurrence: US)
  Receive Date: 20241021
  Receipt Date: 20241021
  Transmission Date: 20250114
  Serious: No
  Sender: SANOFI AVENTIS
  Company Number: US-SANOFI-02250005

PATIENT
  Age: 17 Year
  Weight: 45 kg

DRUGS (1)
  1. DUPIXENT [Suspect]
     Active Substance: DUPILUMAB
     Indication: Dermatitis atopic
     Dosage: 200MG, EVERY 14 DAYS

REACTIONS (2)
  - Minimal residual disease [Unknown]
  - Ill-defined disorder [Unknown]
